FAERS Safety Report 24218034 (Version 2)
Quarter: 2024Q3

REPORT INFORMATION
  Report Type: Spontaneous
  Country: CN (occurrence: CN)
  Receive Date: 20240816
  Receipt Date: 20240823
  Transmission Date: 20241016
  Serious: Yes (Hospitalization)
  Sender: CSL BEHRING
  Company Number: CN-BEH-2024177026

PATIENT
  Age: 87 Year
  Sex: Male
  Weight: 60 kg

DRUGS (4)
  1. ALBURX [Suspect]
     Active Substance: ALBUMIN HUMAN
     Indication: Hypoproteinaemia
     Dosage: 10 G, QD
     Route: 041
     Dates: start: 20240712, end: 20240713
  2. SODIUM CHLORIDE [Concomitant]
     Active Substance: SODIUM CHLORIDE
     Indication: Vehicle solution use
     Dosage: 100 ML, TID
     Route: 042
     Dates: start: 20240708, end: 20240716
  3. CEFOPERAZONE SODIUM\SULBACTAM SODIUM [Concomitant]
     Active Substance: CEFOPERAZONE SODIUM\SULBACTAM SODIUM
     Indication: Product used for unknown indication
     Dosage: 3 G, TID
     Route: 042
     Dates: start: 20240708, end: 20240715
  4. PIPERACILLIN AND TAZOBACTAM [Concomitant]
     Active Substance: PIPERACILLIN SODIUM\TAZOBACTAM SODIUM
     Indication: Product used for unknown indication
     Dosage: 4.5 G, TID
     Route: 042
     Dates: start: 20240715, end: 20240716

REACTIONS (12)
  - Erythema multiforme [Recovered/Resolved]
  - Pneumonia [Unknown]
  - Effusion [Unknown]
  - Oral mucosa erosion [Unknown]
  - Pyrexia [Unknown]
  - Skin discolouration [Unknown]
  - Erythema [Recovered/Resolved]
  - Erythema [Recovered/Resolved]
  - Peripheral swelling [Recovered/Resolved]
  - Skin temperature increased [Recovered/Resolved]
  - Blister [Recovered/Resolved]
  - Blister [Recovered/Resolved]

NARRATIVE: CASE EVENT DATE: 20240712
